FAERS Safety Report 5674275-5 (Version None)
Quarter: 2008Q2

REPORT INFORMATION
  Report Type: 
  Country: None (occurrence: None)
  Receive Date: 20080226
  Receipt Date: 19990803
  Transmission Date: 20081010
  Serious: Yes (Death)
  Sender: FDA-Public Use
  Company Number: 99-005

PATIENT
  Sex: Female

DRUGS (8)
  1. FP TABLET (SELEGILINE HYDROCHLORIDE) [Suspect]
     Indication: PARKINSON'S DISEASE
     Dosage: 5MG/DAY P.O.
     Route: 048
     Dates: start: 19990215, end: 19990315
  2. PERMAX [Concomitant]
  3. LUDIOMIL [Concomitant]
  4. MELLARIL [Concomitant]
  5. ALPROSTADIL [Concomitant]
  6. CARBIDOPA AND LEVODOPA [Concomitant]
  7. (MAGNESIUM OXIDE) [Concomitant]
  8. MORPHINE [Concomitant]

REACTIONS (1)
  - DEATH [None]
